FAERS Safety Report 22260762 (Version 1)
Quarter: 2023Q2

REPORT INFORMATION
  Report Type: Spontaneous
  Country: US (occurrence: None)
  Receive Date: 20230427
  Receipt Date: 20230427
  Transmission Date: 20230721
  Serious: Yes (Hospitalization)
  Sender: FDA-Public Use
  Company Number: None

PATIENT
  Age: 86 Year
  Sex: Female
  Weight: 68.9 kg

DRUGS (1)
  1. CIPROFLOXACIN [Suspect]
     Active Substance: CIPROFLOXACIN
     Indication: Urinary tract infection
     Dosage: ORAL
     Route: 048
     Dates: start: 20230420, end: 20230423

REACTIONS (3)
  - Dyspnoea [None]
  - Cough [None]
  - Vascular pseudoaneurysm [None]

NARRATIVE: CASE EVENT DATE: 20230423
